FAERS Safety Report 10842306 (Version 4)
Quarter: 2015Q4

REPORT INFORMATION
  Report Type: Spontaneous
  Country: US (occurrence: US)
  Receive Date: 20150220
  Receipt Date: 20151222
  Transmission Date: 20160304
  Serious: Yes (Death)
  Sender: FDA-Public Use
  Company Number: US-PFIZER INC-2015059291

PATIENT
  Age: 70 Year
  Sex: Female

DRUGS (7)
  1. ASPIRIN. [Concomitant]
     Active Substance: ASPIRIN
  2. LORAZEPAM. [Concomitant]
     Active Substance: LORAZEPAM
  3. SUTENT [Suspect]
     Active Substance: SUNITINIB MALATE
     Indication: RENAL CELL CARCINOMA
     Dosage: 50 MG, CYCLIC (DAILY X 28 DAYS THEN OFF 14 DAYS)
     Route: 048
     Dates: start: 20140228, end: 20150713
  4. LISINOPRIL. [Concomitant]
     Active Substance: LISINOPRIL
  5. ATIVAN [Concomitant]
     Active Substance: LORAZEPAM
     Dosage: UNK
  6. BENADRYL [Concomitant]
     Active Substance: DIPHENHYDRAMINE HYDROCHLORIDE
     Indication: HYPERSENSITIVITY
  7. TYLENOL [Concomitant]
     Active Substance: ACETAMINOPHEN
     Dosage: UNK, AS NEEDED

REACTIONS (14)
  - Diarrhoea [Unknown]
  - Insomnia [Unknown]
  - Dyspepsia [Unknown]
  - Muscular weakness [Unknown]
  - Fall [Unknown]
  - Fatigue [Unknown]
  - Nausea [Unknown]
  - Skin disorder [Unknown]
  - Lacrimation increased [Unknown]
  - Palmar-plantar erythrodysaesthesia syndrome [Recovered/Resolved]
  - Hypothyroidism [Unknown]
  - Blood pressure decreased [Recovered/Resolved]
  - Death [Fatal]
  - Asthenia [Unknown]

NARRATIVE: CASE EVENT DATE: 20141210
